FAERS Safety Report 6336781-X (Version None)
Quarter: 2009Q3

REPORT INFORMATION
  Report Type: 
  Country: None (occurrence: None)
  Receive Date: 20090831
  Receipt Date: 20090831
  Transmission Date: 20100115
  Serious: No
  Sender: FDA-Public Use
  Company Number: None

PATIENT
  Sex: Male
  Weight: 83.9154 kg

DRUGS (1)
  1. SINGULAIR [Suspect]
     Indication: ASTHMA
     Dosage: 10 MG 1 A DAY PO
     Route: 048
     Dates: start: 20060216, end: 20090825

REACTIONS (3)
  - ANXIETY [None]
  - EMOTIONAL DISORDER [None]
  - STRESS [None]
